FAERS Safety Report 4599498-8 (Version None)
Quarter: 2005Q1

REPORT INFORMATION
  Report Type: 
  Country: None (occurrence: None)
  Receive Date: 20050303
  Receipt Date: 20050210
  Transmission Date: 20050727
  Serious: Yes (Hospitalization)
  Sender: FDA-Public Use
  Company Number: USA040774130

PATIENT
  Age: 66 Year
  Sex: Male
  Weight: 68 kg

DRUGS (12)
  1. HUMATROPE [Suspect]
     Indication: LYMPHOCYTIC HYPOPHYSITIS
     Dates: start: 19990101
  2. FLUOXETINE [Concomitant]
  3. ACTOS [Concomitant]
  4. PRILOSEC (OMEPRAZOLE RATIOPHARM) [Concomitant]
  5. NEURONTIN (GABAPENTIN PFIZER) [Concomitant]
  6. TRAZODONE HCL [Concomitant]
  7. DDAVP (DESMOPRESSIN ACETATE) [Concomitant]
  8. LIPITOR [Concomitant]
  9. LEVOXYL [Concomitant]
  10. PREDNISONE [Concomitant]
  11. METFORMIN HCL [Concomitant]
  12. TESTOSTERONE [Concomitant]

REACTIONS (11)
  - BODY HEIGHT DECREASED [None]
  - DIFFICULTY IN WALKING [None]
  - FRACTURE NONUNION [None]
  - HAIR COLOUR CHANGES [None]
  - LIMB INJURY [None]
  - MUSCLE HYPERTROPHY [None]
  - PAIN IN EXTREMITY [None]
  - PHARMACEUTICAL PRODUCT COMPLAINT [None]
  - POST PROCEDURAL COMPLICATION [None]
  - TOE DEFORMITY [None]
  - WEIGHT DECREASED [None]
